FAERS Safety Report 18264117 (Version 2)
Quarter: 2020Q3

REPORT INFORMATION
  Report Type: Spontaneous
  Country: US (occurrence: US)
  Receive Date: 20200914
  Receipt Date: 20200926
  Transmission Date: 20201103
  Serious: No
  Sender: FDA-Public Use
  Company Number: US-TEVA-2020-US-1827546

PATIENT
  Sex: Female

DRUGS (2)
  1. CLONAZEPAM TEVA [Suspect]
     Active Substance: CLONAZEPAM
     Indication: SLEEP DISORDER
  2. CLONAZEPAM TEVA [Suspect]
     Active Substance: CLONAZEPAM
     Indication: RESTLESS LEGS SYNDROME
     Dosage: CUT THEM IN HALF AND ONLY TOOK 1 MG, TAKES ONE HALF OF THE TABLET ONCE AT NIGHT
     Route: 065
     Dates: start: 2006

REACTIONS (7)
  - Nervousness [Unknown]
  - Product quality issue [Unknown]
  - Irritability [Unknown]
  - Drug ineffective [Unknown]
  - Anxiety [Unknown]
  - Insomnia [Unknown]
  - Withdrawal syndrome [Unknown]

NARRATIVE: CASE EVENT DATE: 2020
